FAERS Safety Report 10950710 (Version 1)
Quarter: 2015Q1

REPORT INFORMATION
  Report Type: Spontaneous
  Country: JP (occurrence: JP)
  Receive Date: 20150324
  Receipt Date: 20150324
  Transmission Date: 20150721
  Serious: Yes (Death, Other)
  Sender: FDA-Public Use
  Company Number: JP-PFIZER INC-2015085571

PATIENT
  Age: 6 Decade
  Sex: Male

DRUGS (1)
  1. SUTENT [Suspect]
     Active Substance: SUNITINIB MALATE
     Indication: RENAL CELL CARCINOMA
     Dosage: UNK
     Route: 048
     Dates: start: 20100628

REACTIONS (5)
  - Disease progression [Fatal]
  - Pleural effusion [Unknown]
  - Hypothyroidism [Unknown]
  - Pancreatitis acute [Unknown]
  - Renal cell carcinoma [Fatal]

NARRATIVE: CASE EVENT DATE: 20101121
